FAERS Safety Report 21811886 (Version 1)
Quarter: 2023Q1

REPORT INFORMATION
  Report Type: Spontaneous
  Country: FR (occurrence: FR)
  Receive Date: 20230103
  Receipt Date: 20230103
  Transmission Date: 20230417
  Serious: Yes (Other)
  Sender: FDA-Public Use
  Company Number: None

PATIENT
  Age: 22 Year
  Sex: Female

DRUGS (2)
  1. ACETAMINOPHEN [Suspect]
     Active Substance: ACETAMINOPHEN
     Indication: Analgesic intervention supportive therapy
     Dosage: 1 DOSAGE FORM
     Route: 048
     Dates: start: 20220128, end: 20220128
  2. PHOLCODINE [Suspect]
     Active Substance: PHOLCODINE
     Indication: Cough
     Dosage: UNK
     Route: 048
     Dates: start: 20220128

REACTIONS (1)
  - Angioedema [Recovered/Resolved]

NARRATIVE: CASE EVENT DATE: 20220128
